FAERS Safety Report 26160890 (Version 1)
Quarter: 2025Q4

REPORT INFORMATION
  Report Type: Spontaneous
  Country: JP (occurrence: JP)
  Receive Date: 20251216
  Receipt Date: 20251216
  Transmission Date: 20260118
  Serious: Yes (Other)
  Sender: ROCHE
  Company Number: JP-CHUGAI-2025034430

PATIENT
  Age: 76 Year
  Sex: Male
  Weight: 63.1 kg

DRUGS (5)
  1. LUNSUMIO [Suspect]
     Active Substance: MOSUNETUZUMAB-AXGB
     Indication: Follicular lymphoma
     Dosage: 1 MILLIGRAM
     Route: 041
  2. LUNSUMIO [Suspect]
     Active Substance: MOSUNETUZUMAB-AXGB
     Dosage: 2 MILLIGRAM
     Route: 041
  3. LUNSUMIO [Suspect]
     Active Substance: MOSUNETUZUMAB-AXGB
     Dosage: 60 MILLIGRAM
     Route: 041
  4. LUNSUMIO [Suspect]
     Active Substance: MOSUNETUZUMAB-AXGB
     Dosage: 60 MILLIGRAM
     Route: 041
  5. LUNSUMIO [Suspect]
     Active Substance: MOSUNETUZUMAB-AXGB
     Dosage: 30 MILLIGRAM
     Route: 041

REACTIONS (2)
  - Herpes zoster [Recovered/Resolved]
  - Retinitis [Not Recovered/Not Resolved]
